FAERS Safety Report 9496255 (Version 3)
Quarter: 2014Q1

REPORT INFORMATION
  Report Type: Report from Study
  Country: GB (occurrence: GB)
  Receive Date: 20130904
  Receipt Date: 20140212
  Transmission Date: 20141002
  Serious: Yes (Other)
  Sender: FDA-Public Use
  Company Number: GB-BAYER-2013-104157

PATIENT
  Age: 41 Year
  Sex: Female

DRUGS (1)
  1. BETAFERON [Suspect]
     Indication: MULTIPLE SCLEROSIS
     Dosage: 250 ?G, QOD
     Route: 058
     Dates: start: 20130729

REACTIONS (6)
  - Optic neuritis [None]
  - Influenza like illness [Recovered/Resolved]
  - Injection site inflammation [None]
  - Injection site pruritus [Not Recovered/Not Resolved]
  - Body temperature increased [None]
  - Injection site reaction [Not Recovered/Not Resolved]
